FAERS Safety Report 23620411 (Version 1)
Quarter: 2024Q1

REPORT INFORMATION
  Report Type: Spontaneous
  Country: US (occurrence: US)
  Receive Date: 20240312
  Receipt Date: 20240312
  Transmission Date: 20240409
  Serious: No
  Sender: FDA-Public Use
  Company Number: US-TARO PHARMACEUTICALS USA INC.-2023TAR01204

PATIENT

DRUGS (2)
  1. TERCONAZOLE [Suspect]
     Active Substance: TERCONAZOLE
     Indication: Vulvovaginal mycotic infection
     Dosage: 1 APPLICATORFUL, OD
     Route: 067
     Dates: start: 20231030, end: 20231106
  2. TERCONAZOLE [Suspect]
     Active Substance: TERCONAZOLE
     Dosage: 1 APPLICATORFUL, OD
     Route: 067
     Dates: start: 20231108

REACTIONS (3)
  - Product use in unapproved indication [Unknown]
  - Product quality issue [Unknown]
  - Pruritus [Unknown]

NARRATIVE: CASE EVENT DATE: 20231106
